FAERS Safety Report 7931091-9 (Version None)
Quarter: 2011Q4

REPORT INFORMATION
  Report Type: 
  Country: None (occurrence: None)
  Receive Date: 20111121
  Receipt Date: 20111114
  Transmission Date: 20120403
  Serious: Yes (Other)
  Sender: FDA-Public Use
  Company Number: US-TEVA-309228USA

PATIENT
  Age: 40 Year
  Sex: Male

DRUGS (1)
  1. TRAZODONE HCL [Suspect]
     Indication: INSOMNIA
     Dosage: 50-100 MG AT BEDTIME AS NEEDED

REACTIONS (1)
  - TRANSIENT ISCHAEMIC ATTACK [None]
